FAERS Safety Report 11807399 (Version 2)
Quarter: 2017Q2

REPORT INFORMATION
  Report Type: Spontaneous
  Country: US (occurrence: US)
  Receive Date: 20151207
  Receipt Date: 20170616
  Transmission Date: 20170829
  Serious: No
  Sender: FDA-Public Use
  Company Number: US-TEVA-614527USA

PATIENT
  Sex: Female

DRUGS (9)
  1. GABAPENTIN. [Concomitant]
     Active Substance: GABAPENTIN
  2. HYDROCHLOROT [Concomitant]
     Active Substance: HYDROCHLOROTHIAZIDE
  3. METOPROLOL. [Concomitant]
     Active Substance: METOPROLOL
  4. BACLOFEN. [Concomitant]
     Active Substance: BACLOFEN
  5. COPAXONE [Suspect]
     Active Substance: GLATIRAMER ACETATE
     Indication: MULTIPLE SCLEROSIS
     Dates: start: 20141017
  6. VITAMIN D [Concomitant]
     Active Substance: CHOLECALCIFEROL
  7. CENTRUM [Concomitant]
     Active Substance: VITAMINS
  8. METAMUCIL [Concomitant]
     Active Substance: PLANTAGO SEED
  9. DOCUSATE [Concomitant]
     Active Substance: DOCUSATE

REACTIONS (3)
  - Memory impairment [Unknown]
  - Drug dose omission [Unknown]
  - Pigmentation disorder [Not Recovered/Not Resolved]
